FAERS Safety Report 24993457 (Version 1)
Quarter: 2025Q1

REPORT INFORMATION
  Report Type: Report from Study
  Country: CN (occurrence: CN)
  Receive Date: 20250221
  Receipt Date: 20250221
  Transmission Date: 20250409
  Serious: Yes (Death)
  Sender: ROCHE
  Company Number: CN-ROCHE-10000211835

PATIENT
  Age: 85 Year
  Sex: Male
  Weight: 50.6 kg

DRUGS (1)
  1. POLIVY [Suspect]
     Active Substance: POLATUZUMAB VEDOTIN-PIIQ
     Indication: Diffuse large B-cell lymphoma
     Route: 040
     Dates: start: 20250104, end: 20250104

REACTIONS (1)
  - Death [Fatal]

NARRATIVE: CASE EVENT DATE: 20250126
